FAERS Safety Report 9321758 (Version 2)
Quarter: 2013Q3

REPORT INFORMATION
  Report Type: Report from Study
  Country: US (occurrence: US)
  Receive Date: 20130531
  Receipt Date: 20130801
  Transmission Date: 20140515
  Serious: Yes (Hospitalization)
  Sender: FDA-Public Use
  Company Number: US-ABBOTT-13P-163-1095832-00

PATIENT
  Age: 20 Year
  Sex: Male

DRUGS (11)
  1. HUMIRA [Suspect]
     Indication: CROHN^S DISEASE
     Dates: start: 201206
  2. CALCIUM + VITAMIN D [Concomitant]
     Indication: CROHN^S DISEASE
  3. CIPRO [Concomitant]
     Indication: CROHN^S DISEASE
  4. FOLIC ACID [Concomitant]
     Indication: CROHN^S DISEASE
  5. METHOTREXATE [Concomitant]
     Indication: CROHN^S DISEASE
  6. KEPPRA [Concomitant]
     Indication: CONVULSION
  7. FLAGYL [Concomitant]
     Indication: CROHN^S DISEASE
  8. FLAGYL [Concomitant]
     Indication: FISTULA
  9. FLAGYL [Concomitant]
     Indication: ABSCESS
  10. ZOFRAN [Concomitant]
     Indication: CROHN^S DISEASE
  11. PERCOCET [Concomitant]
     Indication: PAIN

REACTIONS (5)
  - Regurgitation [Unknown]
  - Crohn^s disease [Recovered/Resolved]
  - Diarrhoea [Unknown]
  - Anal fistula [Recovered/Resolved]
  - Drug dose omission [Unknown]
